FAERS Safety Report 22592520 (Version 2)
Quarter: 2023Q2

REPORT INFORMATION
  Report Type: Spontaneous
  Country: US (occurrence: US)
  Receive Date: 20230613
  Receipt Date: 20230616
  Transmission Date: 20230721
  Serious: Yes (Other)
  Sender: FDA-Public Use
  Company Number: US-SA-2023SA177326

PATIENT
  Age: 28 Year
  Sex: Female

DRUGS (1)
  1. CEREZYME [Suspect]
     Active Substance: IMIGLUCERASE
     Indication: Gaucher^s disease
     Dosage: 3600 U, QOW
     Route: 042
     Dates: start: 202104

REACTIONS (7)
  - Abortion spontaneous [Unknown]
  - Venous injury [Unknown]
  - Poor venous access [Unknown]
  - Contusion [Unknown]
  - Burning sensation [Unknown]
  - Pruritus [Unknown]
  - Treatment noncompliance [Unknown]

NARRATIVE: CASE EVENT DATE: 20230301
